FAERS Safety Report 4950192-0 (Version None)
Quarter: 2006Q1

REPORT INFORMATION
  Report Type: 
  Country: None (occurrence: None)
  Receive Date: 20060316
  Receipt Date: 20060306
  Transmission Date: 20060701
  Serious: Yes (Other)
  Sender: FDA-Public Use
  Company Number: 2005149933

PATIENT
  Sex: Female

DRUGS (1)
  1. MINOXIDIL [Suspect]
     Indication: ALOPECIA
     Dosage: UNSPECIFIED DAILY, TOPICAL
     Route: 061
     Dates: start: 19900101

REACTIONS (5)
  - ALOPECIA [None]
  - AMENORRHOEA [None]
  - BREAST CANCER FEMALE [None]
  - HAIR TEXTURE ABNORMAL [None]
  - TREATMENT NONCOMPLIANCE [None]
